FAERS Safety Report 17838958 (Version 1)
Quarter: 2020Q2

REPORT INFORMATION
  Report Type: Spontaneous
  Country: US (occurrence: US)
  Receive Date: 20200529
  Receipt Date: 20200529
  Transmission Date: 20200714
  Serious: Yes (Life-Threatening, Hospitalization, Other)
  Sender: FDA-Public Use
  Company Number: US-DRREDDYS-USA/USA/20/0123239

PATIENT
  Age: 20 Year
  Sex: Female

DRUGS (6)
  1. DEFEROXAMINE MESYLATE. [Suspect]
     Active Substance: DEFEROXAMINE MESYLATE
     Indication: PRODUCT USED FOR UNKNOWN INDICATION
     Dosage: DAY 1 OVER 10 HOURS
     Route: 058
  2. DEFEROXAMINE MESYLATE. [Suspect]
     Active Substance: DEFEROXAMINE MESYLATE
     Dosage: OVER 10 HOURS
     Route: 058
  3. DEFEROXAMINE MESYLATE. [Suspect]
     Active Substance: DEFEROXAMINE MESYLATE
     Dosage: DAY 1 OVER 10 HOURS
     Route: 058
  4. DEFEROXAMINE MESYLATE. [Suspect]
     Active Substance: DEFEROXAMINE MESYLATE
     Dosage: DAY 1 OVER 10 HOURS
     Route: 058
  5. DEFEROXAMINE MESYLATE. [Suspect]
     Active Substance: DEFEROXAMINE MESYLATE
     Dosage: DAY 1 OVER 10 HOURS
     Route: 058
  6. DEFERASIROX. [Suspect]
     Active Substance: DEFERASIROX
     Indication: PRODUCT USED FOR UNKNOWN INDICATION
     Route: 048

REACTIONS (1)
  - Anaphylactic reaction [Recovered/Resolved]
